FAERS Safety Report 25998133 (Version 1)
Quarter: 2025Q4

REPORT INFORMATION
  Report Type: Other
  Country: CA (occurrence: CA)
  Receive Date: 20251105
  Receipt Date: 20251105
  Transmission Date: 20260118
  Serious: Yes (Other)
  Sender: APOTEX
  Company Number: CA-PGRTD-001152334

PATIENT
  Weight: 130 kg

DRUGS (8)
  1. OLANZAPINE [Suspect]
     Active Substance: OLANZAPINE
     Indication: Affective disorder
     Route: 065
  2. CLONAZEPAM [Concomitant]
     Active Substance: CLONAZEPAM
     Route: 065
  3. DIVALPROEX SODIUM [Concomitant]
     Active Substance: DIVALPROEX SODIUM
     Route: 065
  4. ABILIFY [Concomitant]
     Active Substance: ARIPIPRAZOLE
     Route: 065
  5. ATIVAN [Concomitant]
     Active Substance: LORAZEPAM
     Route: 065
  6. CITALOPRAM HYDROBROMIDE [Concomitant]
     Active Substance: CITALOPRAM HYDROBROMIDE
     Route: 065
  7. PANTOPRAZOLE SODIUM [Concomitant]
     Active Substance: PANTOPRAZOLE SODIUM
     Route: 065
  8. PROCTOSEDYL [Concomitant]
     Active Substance: DIBUCAINE HYDROCHLORIDE\HYDROCORTISONE
     Route: 065

REACTIONS (7)
  - Suicidal ideation [Recovered/Resolved]
  - Abdominal pain [Recovered/Resolved]
  - Mood swings [Recovered/Resolved]
  - Product substitution issue [Recovered/Resolved]
  - Nausea [Recovered/Resolved]
  - Agitation [Recovered/Resolved]
  - Insomnia [Recovered/Resolved]
